FAERS Safety Report 9054070 (Version 4)
Quarter: 2013Q2

REPORT INFORMATION
  Report Type: Report from Study
  Country: US (occurrence: US)
  Receive Date: 20130208
  Receipt Date: 20130520
  Transmission Date: 20140414
  Serious: Yes (Hospitalization, Other)
  Sender: FDA-Public Use
  Company Number: US-ASTELLAS-2012US010786

PATIENT
  Age: 85 Year
  Sex: Male
  Weight: 105 kg

DRUGS (9)
  1. ERLOTINIB TABLET [Suspect]
     Indication: CHOLANGIOCARCINOMA
     Dosage: 150 MG, UID/QD, DAYS 3-8 AMD 17-22
     Route: 048
     Dates: start: 20121013, end: 20121018
  2. ERLOTINIB TABLET [Suspect]
     Dosage: UNK
     Route: 048
     Dates: start: 20121107
  3. GEMZAR [Suspect]
     Indication: CHOLANGIOCARCINOMA
     Dosage: 800 MG/M2, Q2W
     Route: 042
     Dates: start: 20121011, end: 20121024
  4. GEMZAR [Suspect]
     Dosage: UNK
     Route: 042
     Dates: start: 20121107
  5. OXALIPLATIN [Suspect]
     Indication: CHOLANGIOCARCINOMA
     Dosage: 85 MG/M2, Q2W
     Route: 042
     Dates: start: 20121012, end: 20121025
  6. OXALIPLATIN [Suspect]
     Dosage: UNK
     Route: 065
     Dates: start: 20121107
  7. PROCHLORPERAZINE MALEATE [Concomitant]
     Indication: PRODUCT USED FOR UNKNOWN INDICATION
     Dosage: 10 MG, QID, PRN
     Route: 048
     Dates: start: 20121011
  8. LORAZEPAM [Concomitant]
     Indication: SLEEP DISORDER
     Dosage: 0.5 MG, QHS, PRN
     Route: 048
  9. ONDANSETRON [Concomitant]
     Indication: PRODUCT USED FOR UNKNOWN INDICATION
     Dosage: 4 MG, PRN, Q 8HRS
     Route: 048
     Dates: start: 20120814

REACTIONS (8)
  - Off label use [Unknown]
  - Leukopenia [Recovered/Resolved]
  - Neutropenia [Recovered/Resolved]
  - Pyrexia [Recovered/Resolved]
  - Fatigue [Unknown]
  - Nausea [Unknown]
  - Rash erythematous [Unknown]
  - Rash maculo-papular [Unknown]
